FAERS Safety Report 25165704 (Version 2)
Quarter: 2025Q2

REPORT INFORMATION
  Report Type: Spontaneous
  Country: US (occurrence: US)
  Receive Date: 20250407
  Receipt Date: 20250416
  Transmission Date: 20250717
  Serious: Yes (Life-Threatening, Hospitalization)
  Sender: TEVA
  Company Number: US-TEVA-VS-3317092

PATIENT
  Age: 60 Year
  Sex: Female

DRUGS (3)
  1. EPINEPHRINE [Suspect]
     Active Substance: EPINEPHRINE
     Indication: Respiratory distress
     Route: 065
  2. EPINEPHRINE [Suspect]
     Active Substance: EPINEPHRINE
     Indication: Asthma
  3. ALBUTEROL [Suspect]
     Active Substance: ALBUTEROL
     Indication: Respiratory distress
     Route: 065

REACTIONS (1)
  - Drug ineffective [Unknown]
